FAERS Safety Report 23096332 (Version 2)
Quarter: 2023Q4

REPORT INFORMATION
  Report Type: Spontaneous
  Country: US (occurrence: US)
  Receive Date: 20231023
  Receipt Date: 20231218
  Transmission Date: 20240109
  Serious: Yes (Other)
  Sender: FDA-Public Use
  Company Number: US-BRISTOL-MYERS SQUIBB COMPANY-2023-148135

PATIENT
  Age: 63 Year
  Sex: Male
  Weight: 109.32 kg

DRUGS (2)
  1. POMALYST [Suspect]
     Active Substance: POMALIDOMIDE
     Indication: Plasma cell myeloma
     Dosage: 3W, 1W OFF
     Route: 048
     Dates: end: 20231017
  2. POMALYST [Suspect]
     Active Substance: POMALIDOMIDE
     Dosage: 3W, 1W OFF
     Route: 048
     Dates: end: 20231017

REACTIONS (3)
  - Dysuria [Unknown]
  - Full blood count decreased [Unknown]
  - Diarrhoea [Unknown]
